FAERS Safety Report 10009841 (Version 2)
Quarter: 2014Q1

REPORT INFORMATION
  Report Type: Spontaneous
  Country: US (occurrence: US)
  Receive Date: 20140312
  Receipt Date: 20140312
  Transmission Date: 20141002
  Serious: No
  Sender: FDA-Public Use
  Company Number: US-INCYTE CORPORATION-2012IN002565

PATIENT
  Age: 75 Year
  Sex: Male
  Weight: 74.54 kg

DRUGS (3)
  1. JAKAFI [Suspect]
     Indication: MYELOFIBROSIS
     Dosage: 15 MG, QD
     Route: 048
     Dates: start: 20120601, end: 2012
  2. JAKAFI [Suspect]
     Dosage: 15 MG, BID
     Route: 048
     Dates: start: 20120703
  3. JAKAFI [Suspect]
     Dosage: 20 MG, UNK
     Route: 048

REACTIONS (4)
  - Increased appetite [Recovered/Resolved]
  - Diarrhoea [Recovered/Resolved]
  - Nausea [Recovered/Resolved]
  - Weight increased [Recovered/Resolved]
